FAERS Safety Report 17460622 (Version 1)
Quarter: 2020Q1

REPORT INFORMATION
  Report Type: Spontaneous
  Country: MA (occurrence: MA)
  Receive Date: 20200226
  Receipt Date: 20200226
  Transmission Date: 20200409
  Serious: Yes (Other)
  Sender: FDA-Public Use
  Company Number: MA-009507513-2002MAR009136

PATIENT
  Age: 50 Year
  Sex: Female

DRUGS (1)
  1. FOSAVANCE [Suspect]
     Active Substance: ALENDRONATE SODIUM\CHOLECALCIFEROL
     Indication: OSTEOPOROSIS
     Dosage: 1 TABLET (CAP) A WEEK
     Route: 048
     Dates: start: 201904

REACTIONS (1)
  - Petit mal epilepsy [Not Recovered/Not Resolved]
